FAERS Safety Report 25681157 (Version 1)
Quarter: 2025Q3

REPORT INFORMATION
  Report Type: Spontaneous
  Country: US (occurrence: None)
  Receive Date: 20250813
  Receipt Date: 20250813
  Transmission Date: 20251020
  Serious: Yes (Hospitalization)
  Sender: FDA-CTU
  Company Number: None

PATIENT
  Age: 75 Year
  Sex: Female

DRUGS (1)
  1. TAVNEOS [Suspect]
     Active Substance: AVACOPAN
     Dosage: 30 M,G TWICE A DAY ORAL
     Route: 048

REACTIONS (1)
  - Vasculitis [None]

NARRATIVE: CASE EVENT DATE: 20250813
